FAERS Safety Report 15169784 (Version 1)
Quarter: 2018Q3

REPORT INFORMATION
  Report Type: Spontaneous
  Country: US (occurrence: US)
  Receive Date: 20180720
  Receipt Date: 20180720
  Transmission Date: 20181010
  Serious: No
  Sender: FDA-Public Use
  Company Number: US-JNJFOC-20180636927

PATIENT

DRUGS (3)
  1. CYMBALTA [Concomitant]
     Active Substance: DULOXETINE HYDROCHLORIDE
     Indication: FIBROMYALGIA
     Route: 065
  2. TYLENOL ARTHRITIS PAIN [Suspect]
     Active Substance: ACETAMINOPHEN
     Route: 065
  3. TYLENOL ARTHRITIS PAIN [Suspect]
     Active Substance: ACETAMINOPHEN
     Indication: FIBROMYALGIA
     Dosage: IN THE MORNING AND BEFORE GOING TO BED
     Route: 065

REACTIONS (3)
  - Therapeutic response unexpected [Unknown]
  - Off label use [Unknown]
  - Product use in unapproved indication [Unknown]
